FAERS Safety Report 12483654 (Version 1)
Quarter: 2016Q2

REPORT INFORMATION
  Report Type: Spontaneous
  Country: US (occurrence: None)
  Receive Date: 20160620
  Receipt Date: 20160620
  Transmission Date: 20160815
  Serious: No
  Sender: FDA-Public Use
  Company Number: None

PATIENT
  Age: 65 Year
  Sex: Male

DRUGS (2)
  1. METHOTREXATE 25MG HOSPIRA [Suspect]
     Active Substance: METHOTREXATE
     Route: 058
     Dates: start: 20150406
  2. ORENCIA [Suspect]
     Active Substance: ABATACEPT
     Route: 058
     Dates: start: 20150105

REACTIONS (1)
  - Fluid retention [None]

NARRATIVE: CASE EVENT DATE: 20160616
